FAERS Safety Report 24779476 (Version 2)
Quarter: 2025Q1

REPORT INFORMATION
  Report Type: Spontaneous
  Country: VN (occurrence: VN)
  Receive Date: 20241226
  Receipt Date: 20250102
  Transmission Date: 20250409
  Serious: Yes (Life-Threatening, Hospitalization)
  Sender: PFIZER
  Company Number: VN-MLMSERVICE-20241218-PI288161-00270-1

PATIENT
  Age: 29 Year
  Sex: Female

DRUGS (2)
  1. METHYLPREDNISOLONE [Suspect]
     Active Substance: METHYLPREDNISOLONE
     Indication: Nephrotic syndrome
     Dosage: 48 MG, 1X/DAY (CURRENT DOSE)
  2. INSULIN NOS [Concomitant]
     Active Substance: INSULIN NOS
     Indication: Type 2 diabetes mellitus
     Dosage: 20 IU, 1X/DAY

REACTIONS (4)
  - Cytomegalovirus infection [Recovering/Resolving]
  - Strongyloidiasis [Recovering/Resolving]
  - Hypovolaemic shock [Recovering/Resolving]
  - Gastrointestinal haemorrhage [Recovered/Resolved]
